FAERS Safety Report 23235432 (Version 2)
Quarter: 2023Q4

REPORT INFORMATION
  Report Type: Spontaneous
  Country: US (occurrence: US)
  Receive Date: 20231128
  Receipt Date: 20231207
  Transmission Date: 20240110
  Serious: Yes (Other)
  Sender: FDA-Public Use
  Company Number: US-MLMSERVICE-20231116-4667518-1

PATIENT
  Age: 65 Year
  Sex: Male

DRUGS (1)
  1. ZOLEDRONIC ACID [Suspect]
     Active Substance: ZOLEDRONIC ACID
     Indication: Osteitis deformans
     Dosage: 5 MG, SINGLE
     Route: 042

REACTIONS (3)
  - Musculoskeletal chest pain [Recovering/Resolving]
  - Condition aggravated [Recovering/Resolving]
  - Off label use [Unknown]
